FAERS Safety Report 15671538 (Version 1)
Quarter: 2018Q4

REPORT INFORMATION
  Report Type: Report from Study
  Country: US (occurrence: US)
  Receive Date: 20181129
  Receipt Date: 20181129
  Transmission Date: 20190205
  Serious: No
  Sender: FDA-Public Use
  Company Number: US-TESARO-US-2018TSO04590

PATIENT
  Age: 70 Year
  Sex: Female

DRUGS (3)
  1. ZEJULA [Suspect]
     Active Substance: NIRAPARIB
     Indication: OVARIAN CANCER
     Dosage: 300 MG, QD
     Route: 048
     Dates: start: 20180902
  2. ZEJULA [Suspect]
     Active Substance: NIRAPARIB
     Dosage: 200 MG IN AM, 100 MG PM
     Route: 048
     Dates: start: 20180917, end: 20180925
  3. ZEJULA [Suspect]
     Active Substance: NIRAPARIB
     Dosage: 200MG QAM AND 100 MG QPM
     Route: 048
     Dates: start: 20180902

REACTIONS (6)
  - Nausea [Recovered/Resolved]
  - Dizziness [Recovered/Resolved]
  - Platelet count decreased [Not Recovered/Not Resolved]
  - Feeling abnormal [Recovered/Resolved]
  - Constipation [Recovered/Resolved]
  - Fatigue [Recovered/Resolved]

NARRATIVE: CASE EVENT DATE: 201809
